FAERS Safety Report 9544109 (Version 1)
Quarter: 2013Q3

REPORT INFORMATION
  Report Type: Spontaneous
  Country: GB (occurrence: GB)
  Receive Date: 20130923
  Receipt Date: 20130923
  Transmission Date: 20140515
  Serious: Yes (Hospitalization)
  Sender: FDA-Public Use
  Company Number: GB-TEVA-431616ISR

PATIENT
  Age: 7 Year
  Sex: Male

DRUGS (9)
  1. SALBUTAMOL [Suspect]
     Indication: ASTHMA
     Dosage: 100-500 MICROG AS REQUIRED
     Route: 055
  2. SALBUTAMOL [Suspect]
     Indication: ASTHMA
     Route: 055
  3. SALBUTAMOL [Suspect]
     Route: 040
  4. SALBUTAMOL [Suspect]
     Dosage: 2 MICROG/KG/MIN CONTINUOUS INFUSION
     Route: 041
  5. BECLOMETASONE [Concomitant]
     Indication: ASTHMA
     Route: 055
  6. IPRATROPIUM BROMIDE [Concomitant]
     Indication: ASTHMA
     Route: 055
  7. PREDNISOLONE [Concomitant]
     Indication: ASTHMA
     Route: 048
  8. AMINOPHYLLINE [Concomitant]
     Indication: ASTHMA
     Dosage: LOADING DOSE, FOLLOWED BY 1 MG/KG/H CONTINUOUS INFUSION
     Route: 042
  9. AMINOPHYLLINE [Concomitant]
     Indication: ASTHMA
     Dosage: 1 MG/KG/H CONTINUOUS INFUSION
     Route: 041

REACTIONS (2)
  - Lactic acidosis [Recovering/Resolving]
  - Metabolic acidosis [Recovering/Resolving]
